FAERS Safety Report 19653042 (Version 1)
Quarter: 2021Q3

REPORT INFORMATION
  Report Type: Spontaneous
  Country: US (occurrence: US)
  Receive Date: 20210803
  Receipt Date: 20210803
  Transmission Date: 20211014
  Serious: Yes (Hospitalization)
  Sender: FDA-Public Use
  Company Number: US-PFIZER INC-2021702968

PATIENT
  Age: 68 Year
  Sex: Female

DRUGS (7)
  1. GABAPENTIN. [Suspect]
     Active Substance: GABAPENTIN
     Dosage: UNK
  2. OFEV [Suspect]
     Active Substance: NINTEDANIB
     Dosage: 150 MG, 2X/DAY (150MG 1 IN 0.5 DAY)
     Route: 048
     Dates: start: 20200513, end: 20210107
  3. OFEV [Suspect]
     Active Substance: NINTEDANIB
     Indication: IDIOPATHIC PULMONARY FIBROSIS
     Dosage: 150 MG, 2X/DAY (150MG 1 IN 0.5 DAY)
     Route: 048
     Dates: start: 20200513, end: 20210107
  4. LYRICA [Suspect]
     Active Substance: PREGABALIN
     Dosage: UNK
  5. OFEV [Suspect]
     Active Substance: NINTEDANIB
     Dosage: 150 MG, 2X/DAY (150MG 1 IN 0.5 DAY)
     Route: 048
     Dates: start: 20200513, end: 20210107
  6. DULOXETINE. [Suspect]
     Active Substance: DULOXETINE
     Dosage: UNK
  7. OFEV [Suspect]
     Active Substance: NINTEDANIB
     Dosage: 150 MG, 2X/DAY (150MG 1 IN 0.5 DAY)
     Route: 048
     Dates: start: 20200513, end: 20210107

REACTIONS (17)
  - Dyspnoea [Unknown]
  - Memory impairment [Unknown]
  - COVID-19 [Unknown]
  - Cough [Unknown]
  - Constipation [Unknown]
  - Infrequent bowel movements [Unknown]
  - Nausea [Unknown]
  - Feeling abnormal [Unknown]
  - Lung disorder [Unknown]
  - Balance disorder [Unknown]
  - Hypersomnia [Unknown]
  - Malaise [Unknown]
  - Oedema peripheral [Recovering/Resolving]
  - Diarrhoea [Unknown]
  - Pruritus [Unknown]
  - Nerve injury [Unknown]
  - Urticaria [Unknown]

NARRATIVE: CASE EVENT DATE: 202007
